FAERS Safety Report 8511593-7 (Version None)
Quarter: 2012Q3

REPORT INFORMATION
  Report Type: 
  Country: None (occurrence: None)
  Receive Date: 20120716
  Receipt Date: 20120710
  Transmission Date: 20120928
  Serious: Yes (Hospitalization, Other)
  Sender: FDA-Public Use
  Company Number: PHHY2011MX099424

PATIENT
  Sex: Female

DRUGS (8)
  1. AMLODIPINE [Concomitant]
     Dosage: 1 DF, DAILY
     Dates: start: 20110701
  2. MICARDIS [Concomitant]
     Dosage: 1 DF, DAILY
     Dates: start: 20100701
  3. LYSINE ASPIRIN [Concomitant]
     Dosage: UNK
  4. LACTULOSE [Concomitant]
     Dosage: 1 DF, DAILY
     Dates: start: 20110701
  5. EXELON [Suspect]
     Indication: DEMENTIA ALZHEIMER'S TYPE
     Dosage: 4.6 MG\24HRS
     Route: 062
     Dates: start: 20110914
  6. LYRICA [Concomitant]
     Dosage: 1 DF, DAILY
     Dates: start: 20060701
  7. REDOXON [Concomitant]
  8. MEMANTINE HCL [Concomitant]
     Dosage: 1 DF, DAILY
     Dates: start: 20110101

REACTIONS (3)
  - URINARY TRACT INFECTION [None]
  - LOSS OF CONSCIOUSNESS [None]
  - SEPSIS [None]
